FAERS Safety Report 7276440-2 (Version None)
Quarter: 2011Q1

REPORT INFORMATION
  Report Type: 
  Country: None (occurrence: None)
  Receive Date: 20110131
  Receipt Date: 20110114
  Transmission Date: 20110831
  Serious: Yes (Other)
  Sender: FDA-Public Use
  Company Number: 2011SP002406

PATIENT

DRUGS (1)
  1. DIPROPHOS (BETAMETHASONE SODIUM PHOSPHATE/DIPROPIONATE /00582101/) [Suspect]
     Indication: EPICONDYLITIS

REACTIONS (5)
  - SKIN ATROPHY [None]
  - MUSCLE NECROSIS [None]
  - PIGMENTATION DISORDER [None]
  - SKIN DISORDER [None]
  - OFF LABEL USE [None]
